FAERS Safety Report 4343187-1 (Version None)
Quarter: 2004Q2

REPORT INFORMATION
  Report Type: 
  Country: None (occurrence: None)
  Receive Date: 20040421
  Receipt Date: 20040413
  Transmission Date: 20050107
  Serious: Yes (Hospitalization)
  Sender: FDA-Public Use
  Company Number: PHRM2004FR01508

PATIENT
  Age: 64 Year
  Sex: Male

DRUGS (8)
  1. LIORESAL [Suspect]
     Dosage: 5 MG, TID
     Route: 048
     Dates: start: 20031106, end: 20031114
  2. AUGMENTIN '125' [Suspect]
     Dosage: 1 G, TID
     Route: 042
     Dates: start: 20031105, end: 20031112
  3. PYOSTACINE [Suspect]
     Dosage: 1000 MG, BID
     Route: 048
     Dates: start: 20031112, end: 20031113
  4. GENTALLINE [Concomitant]
     Dosage: 1 DF, TID
     Route: 042
     Dates: start: 20031106, end: 20031112
  5. OFLOCET [Concomitant]
     Dosage: 200 MG, BID
     Route: 048
     Dates: start: 20031112, end: 20031119
  6. LOXEN [Concomitant]
     Indication: ESSENTIAL HYPERTENSION
     Dosage: 150 MG/DAY
     Route: 048
  7. INSULATARD NPH HUMAN [Concomitant]
     Route: 058
     Dates: end: 20031118
  8. HUMALOG [Concomitant]
     Route: 058
     Dates: end: 20031118

REACTIONS (5)
  - DERMATITIS EXFOLIATIVE [None]
  - ERYTHEMA [None]
  - PRURITUS [None]
  - PURPURA [None]
  - RASH MACULO-PAPULAR [None]
